FAERS Safety Report 7055785-5 (Version None)
Quarter: 2010Q4

REPORT INFORMATION
  Report Type: 
  Country: None (occurrence: None)
  Receive Date: 20101021
  Receipt Date: 20101014
  Transmission Date: 20110411
  Serious: Yes (Other)
  Sender: FDA-Public Use
  Company Number: US-JNJFOC-20101004415

PATIENT
  Sex: Female

DRUGS (3)
  1. REMICADE [Suspect]
     Indication: CROHN'S DISEASE
     Route: 042
  2. LISINOPRIL [Concomitant]
     Indication: BLOOD PRESSURE
  3. CONTRACEPTIVES NOS [Concomitant]
     Indication: CONTRACEPTION
     Route: 065

REACTIONS (1)
  - INTESTINAL RESECTION [None]
